FAERS Safety Report 5460446-X (Version None)
Quarter: 2007Q3

REPORT INFORMATION
  Report Type: 
  Country: None (occurrence: None)
  Receive Date: 20070919
  Receipt Date: 20070912
  Transmission Date: 20080115
  Serious: Yes (Hospitalization, Other)
  Sender: FDA-Public Use
  Company Number: US-PFIZER INC-2006153156

PATIENT
  Sex: Male
  Weight: 99.8 kg

DRUGS (3)
  1. CELEBREX [Suspect]
     Indication: BACK PAIN
     Route: 048
  2. BEXTRA [Suspect]
     Indication: BACK PAIN
     Route: 048
  3. VIOXX [Suspect]
     Route: 048

REACTIONS (1)
  - CEREBROVASCULAR ACCIDENT [None]
